FAERS Safety Report 20855997 (Version 15)
Quarter: 2025Q1

REPORT INFORMATION
  Report Type: Report from Study
  Country: US (occurrence: US)
  Receive Date: 20220520
  Receipt Date: 20250312
  Transmission Date: 20250409
  Serious: Yes (Other)
  Sender: TAKEDA
  Company Number: US-TAKEDA-2021TUS029782

PATIENT
  Age: 51 Year
  Sex: Male
  Weight: 82 kg

DRUGS (25)
  1. HUMAN IMMUNOGLOBULIN G [Suspect]
     Active Substance: HUMAN IMMUNOGLOBULIN G
     Indication: Primary immunodeficiency syndrome
     Dosage: 25 GRAM, Q2WEEKS
     Dates: start: 20180912
  2. HUMAN IMMUNOGLOBULIN G [Suspect]
     Active Substance: HUMAN IMMUNOGLOBULIN G
     Indication: Selective IgG subclass deficiency
     Dosage: 25 GRAM, Q2WEEKS
     Dates: start: 20210504
  3. HUMAN IMMUNOGLOBULIN G [Suspect]
     Active Substance: HUMAN IMMUNOGLOBULIN G
     Indication: Immune system disorder
  4. HUMAN IMMUNOGLOBULIN G [Suspect]
     Active Substance: HUMAN IMMUNOGLOBULIN G
     Indication: Hypergammaglobulinaemia
  5. ACETAMINOPHEN [Concomitant]
     Active Substance: ACETAMINOPHEN
  6. DICYCLOMINE HYDROCHLORIDE [Concomitant]
     Active Substance: DICYCLOMINE HYDROCHLORIDE
  7. CIALIS [Concomitant]
     Active Substance: TADALAFIL
  8. ATROPINE\DIPHENOXYLATE [Concomitant]
     Active Substance: ATROPINE\DIPHENOXYLATE
  9. WELCHOL [Concomitant]
     Active Substance: COLESEVELAM HYDROCHLORIDE
     Indication: Blood cholesterol
  10. ALPRAZOLAM [Concomitant]
     Active Substance: ALPRAZOLAM
     Dosage: 2 MILLIGRAM, TID
  11. Lmx [Concomitant]
  12. REZZAYO [Concomitant]
     Active Substance: REZAFUNGIN
  13. DIPHENHYDRAMINE HYDROCHLORIDE [Concomitant]
     Active Substance: DIPHENHYDRAMINE HYDROCHLORIDE
  14. ONDANSETRON HYDROCHLORIDE [Concomitant]
     Active Substance: ONDANSETRON HYDROCHLORIDE
  15. NORVASC [Concomitant]
     Active Substance: AMLODIPINE BESYLATE
  16. DIPHENHYDRAMINE [Concomitant]
     Active Substance: DIPHENHYDRAMINE
  17. EPINEPHRINE [Concomitant]
     Active Substance: EPINEPHRINE
  18. TESTOSTERONE [Concomitant]
     Active Substance: TESTOSTERONE
  19. DICYCLOMINE [Concomitant]
     Active Substance: DICYCLOMINE HYDROCHLORIDE
  20. LOMOTIL [Concomitant]
     Active Substance: ATROPINE SULFATE\DIPHENOXYLATE HYDROCHLORIDE
     Indication: Irritable bowel syndrome
  21. AMLODIPINE [Concomitant]
     Active Substance: AMLODIPINE BESYLATE
     Indication: Hypertension
     Dosage: UNK UNK, QD
  22. PRILOSEC [Concomitant]
     Active Substance: OMEPRAZOLE MAGNESIUM
     Indication: Gastrooesophageal reflux disease
     Dosage: UNK UNK, QD
  23. PRILOSEC [Concomitant]
     Active Substance: OMEPRAZOLE MAGNESIUM
     Indication: Hiatus hernia
  24. VITAMIN D3 [Concomitant]
     Active Substance: CHOLECALCIFEROL
  25. VITAMIN D3 [Concomitant]
     Active Substance: CHOLECALCIFEROL

REACTIONS (72)
  - Lower respiratory tract infection fungal [Unknown]
  - Pulmonary fibrosis [Unknown]
  - Respiratory moniliasis [Unknown]
  - Systemic candida [Unknown]
  - Thyroid disorder [Unknown]
  - Atelectasis [Unknown]
  - General physical health deterioration [Unknown]
  - Gastrointestinal disorder [Unknown]
  - COVID-19 [Recovered/Resolved]
  - Food poisoning [Unknown]
  - Viral infection [Unknown]
  - Infusion site vesicles [Recovering/Resolving]
  - Hiatus hernia [Unknown]
  - Folate deficiency [Unknown]
  - Gastrooesophageal reflux disease [Unknown]
  - Fungal infection [Unknown]
  - Seasonal allergy [Unknown]
  - Insurance issue [Recovering/Resolving]
  - Gastroenteritis viral [Recovered/Resolved]
  - Presyncope [Unknown]
  - Weight decreased [Unknown]
  - Sleep apnoea syndrome [Unknown]
  - Stress [Unknown]
  - Upper respiratory tract infection [Unknown]
  - Streptococcal infection [Unknown]
  - Dysphonia [Unknown]
  - Paranasal sinus hypersecretion [Unknown]
  - Gastrointestinal viral infection [Unknown]
  - Product temperature excursion issue [Unknown]
  - Diastasis recti abdominis [Unknown]
  - Peripheral swelling [Not Recovered/Not Resolved]
  - Infection [Unknown]
  - Infusion site discharge [Unknown]
  - Wheelchair user [Recovered/Resolved]
  - Organ failure [Unknown]
  - Oesophagitis [Unknown]
  - Nasopharyngitis [Unknown]
  - Haematoma [Unknown]
  - Product use issue [Unknown]
  - Infusion site mass [Unknown]
  - Infusion site nodule [Recovered/Resolved]
  - Sinusitis [Recovered/Resolved]
  - Infusion site haemorrhage [Unknown]
  - Insomnia [Not Recovered/Not Resolved]
  - Contusion [Recovered/Resolved]
  - Rash pruritic [Recovered/Resolved]
  - Influenza [Recovered/Resolved]
  - Feeling abnormal [Unknown]
  - Oropharyngeal pain [Unknown]
  - Abdominal distension [Not Recovered/Not Resolved]
  - Dyspepsia [Unknown]
  - Influenza like illness [Unknown]
  - Malaise [Unknown]
  - Cough [Unknown]
  - Feeling hot [Recovered/Resolved]
  - Pain in extremity [Unknown]
  - Infusion site bruising [Unknown]
  - Pyrexia [Not Recovered/Not Resolved]
  - Chest discomfort [Unknown]
  - Vomiting [Not Recovered/Not Resolved]
  - Infusion site swelling [Unknown]
  - Diarrhoea [Unknown]
  - Headache [Not Recovered/Not Resolved]
  - Nausea [Not Recovered/Not Resolved]
  - Fatigue [Unknown]
  - Erythema [Recovered/Resolved]
  - Dizziness [Unknown]
  - Illness [Recovering/Resolving]
  - Device use issue [Recovered/Resolved]
  - Product dose omission issue [Unknown]
  - Inappropriate schedule of product administration [Recovering/Resolving]
  - Incorrect drug administration rate [Unknown]

NARRATIVE: CASE EVENT DATE: 20210609
